FAERS Safety Report 11148737 (Version 1)
Quarter: 2015Q2

REPORT INFORMATION
  Report Type: Spontaneous
  Country: US (occurrence: None)
  Receive Date: 20150527
  Receipt Date: 20150527
  Transmission Date: 20150821
  Serious: Yes (Hospitalization)
  Sender: FDA-Public Use
  Company Number: 2015TASU000796

PATIENT
  Age: 64 Year
  Sex: Female

DRUGS (13)
  1. IRON W/VITAMIN C [Concomitant]
  2. MULTIVITAMIN (ASCORBIC ACID, CALCIUM PANTOTHENATE, CYANOCOBALAMIN, NICOTINAMIDE, PYRIDOXINE HYDROCHLORIDE, RIBOFLAVIN, THIAMINE MONONITRATE, TOCOPHERYL ACETATE) [Concomitant]
  3. MIRAPEX [Concomitant]
     Active Substance: PRAMIPEXOLE DIHYDROCHLORIDE
  4. ARTIFICIAL TEARS (HYPROMELLOSE) [Concomitant]
  5. FISH OIL (COD-LIVER OIL) [Concomitant]
  6. BENADRYL [Concomitant]
     Active Substance: DIPHENHYDRAMINE HYDROCHLORIDE
  7. CALCIUM (CALCIUM CARBONATE) [Concomitant]
  8. MAGNESIUM (MAGNESIUM) [Concomitant]
     Active Substance: MAGNESIUM
  9. HETLIOZ [Suspect]
     Active Substance: TASIMELTEON
     Indication: CIRCADIAN RHYTHM SLEEP DISORDER
     Dates: start: 20150417
  10. COUGH SYRUP (ANTIMONY POTASSIUM TARTRATE, PAPAVER SOMNEFERUM TINCTURE, TERPIN HYDRATE) [Concomitant]
  11. IMODIUM A-D (LOPERAMIDE HYDROCHLORIDE) [Concomitant]
  12. LEXAPRO [Concomitant]
     Active Substance: ESCITALOPRAM OXALATE
  13. NYSTATIN. [Concomitant]
     Active Substance: NYSTATIN

REACTIONS (2)
  - Full blood count decreased [None]
  - Blood iron decreased [None]

NARRATIVE: CASE EVENT DATE: 20150502
